FAERS Safety Report 6702212-0 (Version None)
Quarter: 2010Q2

REPORT INFORMATION
  Report Type: 
  Country: None (occurrence: None)
  Receive Date: 20100429
  Receipt Date: 20100421
  Transmission Date: 20101027
  Serious: Yes (Other)
  Sender: FDA-Public Use
  Company Number: US-PFIZER INC-2010051280

PATIENT
  Age: 25 Year
  Sex: Female

DRUGS (3)
  1. GEODON [Suspect]
     Indication: BIPOLAR DISORDER
     Dosage: 40 MG AT NIGHT
  2. VISTARIL [Suspect]
     Dosage: 50-100MG AT NIGHT
  3. CYMBALTA [Suspect]
     Dosage: 30 MG, DAILY

REACTIONS (1)
  - ELECTROCARDIOGRAM QT PROLONGED [None]
